FAERS Safety Report 9255281 (Version 2)
Quarter: 2013Q2

REPORT INFORMATION
  Report Type: Report from Study
  Country: CA (occurrence: CA)
  Receive Date: 20130425
  Receipt Date: 20130503
  Transmission Date: 20140414
  Serious: Yes (Other)
  Sender: FDA-Public Use
  Company Number: CA-ABBOTT-13P-028-1080047-00

PATIENT
  Age: 66 Year
  Sex: Female
  Weight: 57.2 kg

DRUGS (5)
  1. HUMIRA [Suspect]
     Indication: CROHN^S DISEASE
     Route: 058
     Dates: start: 20120810
  2. VITAMIN B12 [Concomitant]
     Indication: PRODUCT USED FOR UNKNOWN INDICATION
     Route: 058
  3. UNKNOWN MEDICATION [Concomitant]
     Indication: HYPERTENSION
     Route: 048
  4. UNKNOWN MEDICATION [Concomitant]
     Indication: HYPERTENSION
     Route: 048
  5. GABAPENTIN [Concomitant]
     Indication: NEUROPATHY PERIPHERAL
     Route: 048

REACTIONS (14)
  - Peripheral arterial occlusive disease [Not Recovered/Not Resolved]
  - Gait disturbance [Not Recovered/Not Resolved]
  - Pain in extremity [Not Recovered/Not Resolved]
  - Stress [Recovering/Resolving]
  - Hypertension [Unknown]
  - Emphysema [Unknown]
  - Dyspnoea [Not Recovered/Not Resolved]
  - Injection site pain [Not Recovered/Not Resolved]
  - Injection site bruising [Not Recovered/Not Resolved]
  - Weight decreased [Unknown]
  - Injection site haemorrhage [Recovered/Resolved]
  - Injection site extravasation [Recovered/Resolved]
  - Chronic obstructive pulmonary disease [Unknown]
  - Peripheral vascular disorder [Not Recovered/Not Resolved]
